FAERS Safety Report 6472335-2 (Version None)
Quarter: 2009Q4

REPORT INFORMATION
  Report Type: 
  Country: None (occurrence: None)
  Receive Date: 20091201
  Receipt Date: 20091117
  Transmission Date: 20100525
  Serious: Yes (Hospitalization)
  Sender: FDA-Public Use
  Company Number: DSA_42077_2009

PATIENT
  Sex: Female

DRUGS (7)
  1. WELLBUTRIN XL [Suspect]
     Indication: DRUG USE FOR UNKNOWN INDICATION
     Dosage: 300 MG, 150 MG
  2. LAMICTAL [Suspect]
     Indication: BIPOLAR DISORDER
     Dosage: DF ORAL
     Route: 048
     Dates: start: 20080101, end: 20091114
  3. LAMICTAL [Suspect]
     Indication: CONVULSION
     Dosage: DF ORAL
     Route: 048
     Dates: start: 20080101, end: 20091114
  4. LITHIUM [Concomitant]
  5. MINOCYCLINE [Concomitant]
  6. VALTREX [Concomitant]
  7. ABILIFY [Concomitant]

REACTIONS (4)
  - CONVULSION [None]
  - DRUG WITHDRAWAL SYNDROME [None]
  - SUBSTANCE ABUSE [None]
  - TREATMENT NONCOMPLIANCE [None]
